FAERS Safety Report 19879923 (Version 1)
Quarter: 2021Q3

REPORT INFORMATION
  Report Type: Spontaneous
  Country: US (occurrence: US)
  Receive Date: 20210924
  Receipt Date: 20210924
  Transmission Date: 20211014
  Serious: No
  Sender: FDA-Public Use
  Company Number: US-ORGANON-O2109USA000931

PATIENT
  Age: 21 Year
  Sex: Female
  Weight: 48.07 kg

DRUGS (1)
  1. NEXPLANON [Suspect]
     Active Substance: ETONOGESTREL
     Dosage: 1 IMPLANT OF 68 MILLIGRAM
     Route: 059
     Dates: start: 20210909

REACTIONS (2)
  - No adverse event [Unknown]
  - Expired device used [Unknown]

NARRATIVE: CASE EVENT DATE: 20210909
